FAERS Safety Report 10176809 (Version 3)
Quarter: 2015Q1

REPORT INFORMATION
  Report Type: Spontaneous
  Country: US (occurrence: US)
  Receive Date: 20140516
  Receipt Date: 20150106
  Transmission Date: 20150720
  Serious: Yes (Hospitalization)
  Sender: FDA-Public Use
  Company Number: US-BAYER-2014-072452

PATIENT
  Age: 35 Year
  Sex: Female
  Weight: 70.3 kg

DRUGS (2)
  1. MIRENA [Suspect]
     Active Substance: LEVONORGESTREL
     Indication: CONTRACEPTION
     Dosage: 20 MCG/24HR, CONT
     Route: 015
     Dates: start: 20100309, end: 20110915
  2. JUNEL FE 1/20 [Concomitant]
     Active Substance: ETHINYL ESTRADIOL\NORETHINDRONE ACETATE

REACTIONS (8)
  - Uterine perforation [None]
  - Depression [None]
  - Emotional distress [None]
  - Device issue [None]
  - Injury [None]
  - Vaginal haemorrhage [None]
  - Pain [None]
  - Device difficult to use [None]

NARRATIVE: CASE EVENT DATE: 20110914
